FAERS Safety Report 9043447 (Version 1)
Quarter: 2013Q1

REPORT INFORMATION
  Report Type: Report from Study
  Country: US (occurrence: US)
  Receive Date: 20130129
  Receipt Date: 20130129
  Transmission Date: 20140127
  Serious: No
  Sender: FDA-Public Use
  Company Number: US-ABBOTT-12P-163-0911538-00

PATIENT
  Age: 10 Year
  Sex: Female
  Weight: 41.6 kg

DRUGS (8)
  1. HUMIRA 40 MG/0.8 ML PEN [Suspect]
     Indication: CROHN^S DISEASE
     Dosage: 1 DOSE, 1 IN 1 DAY
     Dates: start: 20111222, end: 20111222
  2. HUMIRA 40 MG/0.8 ML PEN [Suspect]
     Dosage: 1 DOSE
     Dates: start: 20120105, end: 20120105
  3. HUMIRA 40 MG/0.8 ML PEN [Suspect]
     Dates: start: 20120119, end: 201202
  4. HUMIRA 40 MG/0.8 ML PEN [Suspect]
     Dates: start: 20120215
  5. PREDNISONE [Concomitant]
     Indication: CROHN^S DISEASE
  6. FLAGYL [Concomitant]
     Indication: CROHN^S DISEASE
  7. CANASA [Concomitant]
     Indication: CROHN^S DISEASE
     Dosage: AT BEDTIME
  8. MIRALAX [Concomitant]
     Indication: PRODUCT USED FOR UNKNOWN INDICATION
     Dosage: MINIMAL AMOUNT

REACTIONS (7)
  - Diarrhoea haemorrhagic [Recovering/Resolving]
  - Abdominal pain [Recovering/Resolving]
  - Crohn^s disease [Recovering/Resolving]
  - Haematochezia [Recovering/Resolving]
  - Treatment failure [Not Recovered/Not Resolved]
  - Faecal calprotectin [Unknown]
  - Off label use [Not Recovered/Not Resolved]
